FAERS Safety Report 7473365-4 (Version None)
Quarter: 2011Q2

REPORT INFORMATION
  Report Type: 
  Country: None (occurrence: None)
  Receive Date: 20110511
  Receipt Date: 20110503
  Transmission Date: 20111010
  Serious: No
  Sender: FDA-Public Use
  Company Number: FR-SANOFI-AVENTIS-2011SA019654

PATIENT
  Sex: Male
  Weight: 69 kg

DRUGS (4)
  1. SERETIDE DISKUS [Concomitant]
     Route: 055
  2. PLAVIX [Concomitant]
     Route: 048
  3. FENOFIBRATE [Concomitant]
     Route: 048
  4. MULTAQ [Suspect]
     Indication: ATRIAL FIBRILLATION
     Route: 048
     Dates: start: 20101215

REACTIONS (4)
  - BLOOD CREATINE PHOSPHOKINASE INCREASED [None]
  - NAUSEA [None]
  - DYSGEUSIA [None]
  - MYALGIA [None]
